FAERS Safety Report 12245845 (Version 1)
Quarter: 2016Q2

REPORT INFORMATION
  Report Type: Report from Study
  Country: BR (occurrence: BR)
  Receive Date: 20160407
  Receipt Date: 20160407
  Transmission Date: 20160815
  Serious: Yes (Hospitalization, Other)
  Sender: FDA-Public Use
  Company Number: BR-ABBVIE-16K-020-1595957-00

PATIENT
  Age: 66 Year
  Sex: Female
  Weight: 60 kg

DRUGS (9)
  1. DIOSMINA [Concomitant]
     Indication: ANGIOPATHY
     Route: 048
     Dates: start: 2008
  2. HYDROCHLOROTHIAZIDE. [Concomitant]
     Active Substance: HYDROCHLOROTHIAZIDE
     Indication: BLOOD PRESSURE ABNORMAL
     Route: 048
  3. AMLODIPINE [Concomitant]
     Active Substance: AMLODIPINE BESYLATE
     Indication: BLOOD PRESSURE ABNORMAL
     Route: 048
     Dates: start: 2014
  4. HUMIRA [Suspect]
     Active Substance: ADALIMUMAB
     Indication: RHEUMATOID ARTHRITIS
     Route: 058
     Dates: start: 2014
  5. OMEPRAZOLE. [Concomitant]
     Active Substance: OMEPRAZOLE
     Indication: GASTROOESOPHAGEAL REFLUX DISEASE
     Route: 048
  6. LEVOTHYROXINE. [Concomitant]
     Active Substance: LEVOTHYROXINE
     Indication: THYROID DISORDER
     Route: 048
     Dates: start: 2012
  7. FOLIC ACID. [Concomitant]
     Active Substance: FOLIC ACID
     Indication: PRODUCT USED FOR UNKNOWN INDICATION
     Route: 048
     Dates: start: 2014
  8. LOSARTAN. [Concomitant]
     Active Substance: LOSARTAN
     Indication: BLOOD PRESSURE ABNORMAL
     Route: 048
  9. ALENDIL CALCIO D [Concomitant]
     Indication: BONE DISORDER
     Route: 048
     Dates: start: 2012

REACTIONS (22)
  - Osteoporosis [Recovering/Resolving]
  - Decreased appetite [Recovering/Resolving]
  - Weight decreased [Recovering/Resolving]
  - Osteoarthritis [Recovering/Resolving]
  - Gait disturbance [Unknown]
  - Arthritis [Unknown]
  - Crying [Recovered/Resolved]
  - Pain [Unknown]
  - Activities of daily living impaired [Unknown]
  - Osteoarthritis [Unknown]
  - Arthralgia [Recovering/Resolving]
  - Arthritis [Recovering/Resolving]
  - Drug ineffective [Unknown]
  - Pyrexia [Unknown]
  - Anaemia [Recovering/Resolving]
  - Injection site pain [Recovered/Resolved]
  - Arthralgia [Recovering/Resolving]
  - Malaise [Recovered/Resolved]
  - Fall [Recovering/Resolving]
  - Pain [Recovering/Resolving]
  - Peripheral swelling [Recovering/Resolving]
  - Grip strength decreased [Recovering/Resolving]

NARRATIVE: CASE EVENT DATE: 201510
